FAERS Safety Report 4440820-0 (Version None)
Quarter: 2004Q3

REPORT INFORMATION
  Report Type: 
  Country: None (occurrence: None)
  Receive Date: 20040903
  Receipt Date: 20040902
  Transmission Date: 20050211
  Serious: Yes (Other)
  Sender: FDA-Public Use
  Company Number: US-GLAXOSMITHKLINE-A0524486A

PATIENT
  Age: 4 Year
  Sex: Male

DRUGS (3)
  1. LAMICTAL [Suspect]
     Indication: EPILEPSY
     Dosage: 60MG TWICE PER DAY
     Route: 048
     Dates: start: 20031201
  2. ZONEGRAN [Concomitant]
  3. BENADRYL [Concomitant]

REACTIONS (1)
  - PETIT MAL EPILEPSY [None]
